FAERS Safety Report 8133718-8 (Version None)
Quarter: 2012Q1

REPORT INFORMATION
  Report Type: 
  Country: None (occurrence: None)
  Receive Date: 20120213
  Receipt Date: 20120205
  Transmission Date: 20120608
  Serious: Yes (Other)
  Sender: FDA-Public Use
  Company Number: BR-BIOMARINP-002286

PATIENT
  Sex: Male
  Weight: 22.8 kg

DRUGS (6)
  1. IBUPROFEN [Concomitant]
     Indication: PYREXIA
     Route: 048
  2. FENOTEROL [Concomitant]
     Indication: PRODUCT USED FOR UNKNOWN INDICATION
     Route: 055
  3. DIAZEPAM [Concomitant]
  4. NAGLAZYME [Suspect]
     Indication: MUCOPOLYSACCHARIDOSIS VI
     Route: 041
     Dates: start: 20040709
  5. NASAL SALINE SOLUTION [Concomitant]
     Indication: PRODUCT USED FOR UNKNOWN INDICATION
     Route: 045
  6. DIPHENYLHYDANTOIN [Concomitant]

REACTIONS (1)
  - CONVULSION [None]
